FAERS Safety Report 5361818-4 (Version None)
Quarter: 2007Q2

REPORT INFORMATION
  Report Type: 
  Country: None (occurrence: None)
  Receive Date: 20070619
  Receipt Date: 20070606
  Transmission Date: 20071010
  Serious: Yes (Life-Threatening, Hospitalization)
  Sender: FDA-Public Use
  Company Number: ES-ELI_LILLY_AND_COMPANY-ES200706001321

PATIENT
  Age: 60 Year
  Sex: Male
  Weight: 70 kg

DRUGS (5)
  1. CYMBALTA [Suspect]
     Indication: BIPOLAR DISORDER
     Dosage: 60 MG, DAILY (1/D)
     Route: 048
     Dates: start: 20061201, end: 20061227
  2. PLENUR [Concomitant]
     Indication: BIPOLAR DISORDER
     Dosage: 400 MG, UNKNOWN
     Route: 065
     Dates: start: 20061201, end: 20061227
  3. LAMICTAL [Concomitant]
     Indication: BIPOLAR DISORDER
     Dosage: 100 MG, DAILY (1/D)
     Route: 048
     Dates: end: 20061227
  4. ANAFRANIL [Concomitant]
     Indication: BIPOLAR DISORDER
     Dosage: 75 MG, DAILY (1/D)
     Route: 048
     Dates: end: 20061227
  5. DORKEN [Concomitant]
     Indication: BIPOLAR DISORDER
     Dosage: 10 MG, DAILY (1/D)
     Route: 048
     Dates: end: 20061227

REACTIONS (3)
  - HYPERNATRAEMIA [None]
  - NEPHROGENIC DIABETES INSIPIDUS [None]
  - STUPOR [None]
